FAERS Safety Report 24379060 (Version 1)
Quarter: 2024Q3

REPORT INFORMATION
  Report Type: Spontaneous
  Country: GB (occurrence: GB)
  Receive Date: 20240930
  Receipt Date: 20240930
  Transmission Date: 20241017
  Serious: Yes (Other)
  Sender: MYLAN
  Company Number: None

PATIENT
  Age: 78 Year
  Sex: Female
  Weight: 60 kg

DRUGS (1)
  1. FAMOTIDINE [Suspect]
     Active Substance: FAMOTIDINE
     Indication: Gastrooesophageal reflux disease
     Dosage: 20 MILLIGRAM, BID (20MG TWICE A DAY)
     Route: 065
     Dates: start: 20240912, end: 20240913

REACTIONS (4)
  - Blood pressure increased [Recovered/Resolved]
  - Head discomfort [Recovered/Resolved]
  - Dizziness postural [Recovered/Resolved]
  - Malaise [Recovered/Resolved]

NARRATIVE: CASE EVENT DATE: 20240912
